FAERS Safety Report 16130387 (Version 1)
Quarter: 2019Q1

REPORT INFORMATION
  Report Type: Report from Study
  Country: CO (occurrence: CO)
  Receive Date: 20190328
  Receipt Date: 20190328
  Transmission Date: 20190418
  Serious: Yes (Hospitalization)
  Sender: FDA-Public Use
  Company Number: PHHY2019CO023683

PATIENT
  Age: 52 Year
  Sex: Female
  Weight: 68 kg

DRUGS (1)
  1. JADENU [Suspect]
     Active Substance: DEFERASIROX
     Indication: MYELODYSPLASTIC SYNDROME
     Dosage: 720 MG, QD
     Route: 048
     Dates: start: 20181029, end: 201811

REACTIONS (9)
  - Chest pain [Unknown]
  - Neutropenia [Unknown]
  - Blood iron increased [Unknown]
  - Lymphadenopathy [Unknown]
  - Blood potassium decreased [Unknown]
  - Pneumonia [Recovered/Resolved]
  - Hepatitis [Unknown]
  - Decreased immune responsiveness [Unknown]
  - Anaemia [Unknown]

NARRATIVE: CASE EVENT DATE: 20190108
